FAERS Safety Report 22050224 (Version 1)
Quarter: 2023Q1

REPORT INFORMATION
  Report Type: Spontaneous
  Country: AT (occurrence: None)
  Receive Date: 20230301
  Receipt Date: 20230301
  Transmission Date: 20230417
  Serious: Yes (Other)
  Sender: FDA-Public Use
  Company Number: 2022A411667

PATIENT
  Sex: Female

DRUGS (8)
  1. LYNPARZA [Suspect]
     Active Substance: OLAPARIB
     Indication: Ovarian cancer metastatic
     Dosage: UNKNOWN
     Route: 048
  2. LYNPARZA [Suspect]
     Active Substance: OLAPARIB
     Indication: Homologous recombination deficiency positive advanced ovarian cancer
     Dosage: UNKNOWN
     Route: 048
  3. LYNPARZA [Suspect]
     Active Substance: OLAPARIB
     Indication: Uterine cancer
     Dosage: UNKNOWN
     Route: 048
  4. LYNPARZA [Suspect]
     Active Substance: OLAPARIB
     Indication: Adenocarcinoma
     Dosage: UNKNOWN
     Route: 048
  5. LYNPARZA [Suspect]
     Active Substance: OLAPARIB
     Indication: Ovarian cancer metastatic
     Dosage: DOSE REDUCED UNKNOWN
     Route: 048
  6. LYNPARZA [Suspect]
     Active Substance: OLAPARIB
     Indication: Homologous recombination deficiency positive advanced ovarian cancer
     Dosage: DOSE REDUCED UNKNOWN
     Route: 048
  7. LYNPARZA [Suspect]
     Active Substance: OLAPARIB
     Indication: Uterine cancer
     Dosage: DOSE REDUCED UNKNOWN
     Route: 048
  8. LYNPARZA [Suspect]
     Active Substance: OLAPARIB
     Indication: Adenocarcinoma
     Dosage: DOSE REDUCED UNKNOWN
     Route: 048

REACTIONS (3)
  - Malignant neoplasm progression [Unknown]
  - Fatigue [Unknown]
  - Off label use [Unknown]
